FAERS Safety Report 6883051-7 (Version None)
Quarter: 2010Q3

REPORT INFORMATION
  Report Type: 
  Country: None (occurrence: None)
  Receive Date: 20100729
  Receipt Date: 20100720
  Transmission Date: 20110219
  Serious: Yes (Hospitalization)
  Sender: FDA-Public Use
  Company Number: CN-ROCHE-679261

PATIENT
  Sex: Female
  Weight: 64 kg

DRUGS (12)
  1. TOCILIZUMAB [Suspect]
     Indication: RHEUMATOID ARTHRITIS
     Dosage: FORM INFUSION.
     Route: 042
     Dates: start: 20070704, end: 20090826
  2. TOCILIZUMAB [Suspect]
     Route: 042
     Dates: start: 20090826
  3. TOCILIZUMAB [Suspect]
     Route: 042
     Dates: start: 20090923
  4. TOCILIZUMAB [Suspect]
     Route: 042
     Dates: start: 20091031
  5. TOCILIZUMAB [Suspect]
     Route: 042
     Dates: start: 20091118
  6. PLACEBO [Suspect]
     Indication: RHEUMATOID ARTHRITIS
     Dosage: FORM: INFUSION PERMANENTLY DISCONTINUED.
     Route: 042
     Dates: start: 20060706, end: 20090826
  7. PLACEBO [Suspect]
     Dosage: PERMANENTLY DISCONTINUED.
     Route: 042
     Dates: start: 20091118
  8. GLIPIZIDE [Concomitant]
     Dosage: DRUG REPORTED: GLIPIZIDE-SINE
     Dates: start: 20020101
  9. METFORMIN HYDROCHLORIDE [Concomitant]
     Dates: start: 20061206
  10. METHOTREXATE [Concomitant]
     Dosage: FREQUENCY: QS
     Route: 048
  11. SINOMENINE [Concomitant]
     Dosage: OTHER DMARDS
     Route: 048
  12. CHOP REGIMEN [Concomitant]
     Dosage: DRUG: CHOP + COP; FREQUENCY: UK
     Route: 041

REACTIONS (1)
  - EXTRANODAL MARGINAL ZONE B-CELL LYMPHOMA (MALT TYPE) [None]
